FAERS Safety Report 9514087 (Version 2)
Quarter: 2014Q1

REPORT INFORMATION
  Report Type: Spontaneous
  Country: US (occurrence: US)
  Receive Date: 20130910
  Receipt Date: 20140122
  Transmission Date: 20141002
  Serious: Yes (Hospitalization)
  Sender: FDA-Public Use
  Company Number: US-B.I. PHARMACEUTICALS,INC./RIDGEFIELD-2013-BI-27634BP

PATIENT
  Age: 78 Year
  Sex: Female
  Weight: 79.38 kg

DRUGS (12)
  1. PRADAXA [Suspect]
     Indication: ATRIAL FIBRILLATION
     Dosage: 300 MG
     Route: 048
     Dates: start: 20111102, end: 20120905
  2. PROVENTIL [Concomitant]
     Route: 055
  3. VITAMIN B 12 [Concomitant]
     Dosage: 1 ML
     Route: 030
  4. IRON [Concomitant]
     Dosage: 650 MG
     Route: 048
  5. HUMALOG MIX PEN [Concomitant]
     Dosage: 110 U
  6. SYNTHROID [Concomitant]
     Dosage: 100 MCG
     Route: 048
  7. NITROLINGUAL [Concomitant]
     Route: 060
  8. OMEPRAZOLE [Concomitant]
     Route: 048
  9. TRENTAL [Concomitant]
     Dosage: 1200 MG
     Route: 048
  10. ZOCOR [Concomitant]
     Dosage: 40 MG
     Route: 048
  11. BETAPACE [Concomitant]
     Dosage: 160 MG
     Route: 048
  12. CARAFATE [Concomitant]
     Route: 048

REACTIONS (2)
  - Gastrointestinal haemorrhage [Recovered/Resolved]
  - Anaemia [Unknown]
